FAERS Safety Report 11215804 (Version 2)
Quarter: 2015Q3

REPORT INFORMATION
  Report Type: Spontaneous
  Country: US (occurrence: US)
  Receive Date: 20150624
  Receipt Date: 20150701
  Transmission Date: 20151125
  Serious: No
  Sender: FDA-Public Use
  Company Number: US-TAKEDA-2015TUS008119

PATIENT
  Age: 45 Year
  Sex: Female

DRUGS (5)
  1. CONTRAVE [Suspect]
     Active Substance: BUPROPION HYDROCHLORIDE\NALTREXONE HYDROCHLORIDE
     Dosage: 1 TABLET, BID
     Route: 048
     Dates: start: 20150609
  2. WELLBUTRIN XL [Concomitant]
     Active Substance: BUPROPION HYDROCHLORIDE
     Dosage: 150 MG, UNK
  3. ASPIRIN                            /00002701/ [Concomitant]
     Active Substance: ASPIRIN
     Dosage: UNK
  4. B12                                /00056201/ [Concomitant]
     Dosage: UNK
  5. CONTRAVE [Suspect]
     Active Substance: BUPROPION HYDROCHLORIDE\NALTREXONE HYDROCHLORIDE
     Indication: OVERWEIGHT
     Dosage: 1 TABLET, QD
     Route: 048
     Dates: start: 20150602, end: 20150608

REACTIONS (4)
  - Dizziness [Unknown]
  - Urinary tract infection [Unknown]
  - Disorientation [Unknown]
  - Asthenia [Unknown]

NARRATIVE: CASE EVENT DATE: 201506
